FAERS Safety Report 10224820 (Version 1)
Quarter: 2014Q2

REPORT INFORMATION
  Report Type: Spontaneous
  Country: US (occurrence: US)
  Receive Date: 20140609
  Receipt Date: 20140609
  Transmission Date: 20141212
  Serious: Yes (Hospitalization)
  Sender: FDA-Public Use
  Company Number: US-GLAXOSMITHKLINE-A1074943A

PATIENT
  Age: 64 Year
  Sex: Female

DRUGS (3)
  1. LAMICTAL [Suspect]
     Indication: EPILEPSY
     Route: 048
  2. NOVOLOG [Concomitant]
  3. SLIDING SCALE INSULIN [Concomitant]

REACTIONS (6)
  - Convulsion [Recovered/Resolved]
  - Fall [Recovered/Resolved]
  - Blood glucose increased [Recovered/Resolved]
  - Skin ulcer haemorrhage [Unknown]
  - Urinary tract infection [Unknown]
  - Balance disorder [Recovered/Resolved]
